FAERS Safety Report 5571789-3 (Version None)
Quarter: 2007Q4

REPORT INFORMATION
  Report Type: 
  Country: None (occurrence: None)
  Receive Date: 20071221
  Receipt Date: 20071210
  Transmission Date: 20080405
  Serious: Yes (Hospitalization)
  Sender: FDA-Public Use
  Company Number: B0500250A

PATIENT
  Age: 86 Year
  Sex: Female

DRUGS (7)
  1. PAROXETINE HCL [Suspect]
  2. LOPRIL [Suspect]
     Route: 048
     Dates: end: 20070530
  3. MONOTILDIEM [Concomitant]
     Dosage: 200MG PER DAY
     Route: 048
  4. PLAVIX [Concomitant]
     Dosage: 1TAB PER DAY
     Route: 048
  5. TROSPIUM CHLORIDE [Concomitant]
     Indication: URINARY INCONTINENCE
     Route: 048
  6. ARIMIDEX [Concomitant]
     Indication: BREAST CANCER FEMALE
     Dosage: 1MG PER DAY
     Route: 048
  7. NOVOLOG MIX 70/30 [Concomitant]
     Dosage: 30MG PER DAY
     Route: 058

REACTIONS (7)
  - ABDOMINAL PAIN LOWER [None]
  - DIARRHOEA [None]
  - HYPONATRAEMIA [None]
  - NAUSEA [None]
  - RENAL FAILURE [None]
  - SMALL INTESTINAL OBSTRUCTION [None]
  - VOMITING [None]
